FAERS Safety Report 7135114-9 (Version None)
Quarter: 2010Q4

REPORT INFORMATION
  Report Type: 
  Country: None (occurrence: None)
  Receive Date: 20101203
  Receipt Date: 20101202
  Transmission Date: 20110411
  Serious: Yes (Other)
  Sender: FDA-Public Use
  Company Number: A0897457A

PATIENT
  Age: 46 Year
  Sex: Male

DRUGS (2)
  1. ALLI [Suspect]
     Indication: WEIGHT LOSS DIET
     Route: 048
  2. NONE [Concomitant]

REACTIONS (7)
  - BLOOD BILIRUBIN INCREASED [None]
  - CHROMATURIA [None]
  - FLATULENCE [None]
  - OCULAR ICTERUS [None]
  - PRURITUS [None]
  - STEATORRHOEA [None]
  - TREATMENT NONCOMPLIANCE [None]
